FAERS Safety Report 14848669 (Version 4)
Quarter: 2018Q4

REPORT INFORMATION
  Report Type: Spontaneous
  Country: FI (occurrence: FI)
  Receive Date: 20180504
  Receipt Date: 20181112
  Transmission Date: 20190204
  Serious: Yes (Disabling, Other)
  Sender: FDA-Public Use
  Company Number: FI-MYLANLABS-2018M1028677

PATIENT
  Age: 40 Year
  Sex: Female

DRUGS (2)
  1. VALPROIC ACID. [Suspect]
     Active Substance: VALPROIC ACID
     Indication: PARTIAL SEIZURES
     Dosage: UNK
     Route: 065
  2. CARBAMAZEPINE. [Suspect]
     Active Substance: CARBAMAZEPINE
     Indication: PARTIAL SEIZURES
     Dosage: UNK
     Route: 065

REACTIONS (9)
  - Terminal insomnia [Unknown]
  - Nervousness [Unknown]
  - Insomnia [Unknown]
  - Snoring [Unknown]
  - Fatigue [Unknown]
  - Anxiety [Unknown]
  - Poor quality sleep [Unknown]
  - Middle insomnia [Unknown]
  - Depressed mood [Unknown]
